FAERS Safety Report 8913776 (Version 1)
Quarter: 2012Q4

REPORT INFORMATION
  Report Type: 
  Country: FR (occurrence: FR)
  Receive Date: 20121119
  Receipt Date: 20121119
  Transmission Date: 20130627
  Serious: Yes (Hospitalization)
  Sender: FDA-Public Use
  Company Number: FR-JNJFOC-20121105853

PATIENT
  Age: 82 Year
  Sex: Male

DRUGS (9)
  1. DUROGESIC [Suspect]
     Indication: PRODUCT USED FOR UNKNOWN INDICATION
     Route: 062
  2. ULTRACET [Suspect]
     Indication: PRODUCT USED FOR UNKNOWN INDICATION
     Dosage: 37.5 mg/325 mg
     Route: 048
     Dates: end: 20120519
  3. KARDEGIC [Concomitant]
     Route: 048
  4. SPECIAFOLDINE [Concomitant]
     Route: 048
  5. PARIET [Concomitant]
     Route: 048
  6. PARACETAMOL [Concomitant]
     Route: 048
  7. FORLAX [Concomitant]
     Route: 048
  8. SIMVASTATINE [Concomitant]
     Route: 065
  9. PERINDOPRIL [Concomitant]
     Route: 065

REACTIONS (2)
  - Blood creatinine increased [Recovering/Resolving]
  - Urinary retention [Recovered/Resolved]
